FAERS Safety Report 8015948-9 (Version None)
Quarter: 2011Q4

REPORT INFORMATION
  Report Type: 
  Country: None (occurrence: None)
  Receive Date: 20111230
  Receipt Date: 20111221
  Transmission Date: 20120403
  Serious: Yes (Other)
  Sender: FDA-Public Use
  Company Number: US-SANOFI-AVENTIS-2011SA083830

PATIENT
  Sex: Female

DRUGS (7)
  1. CYCLOPHOSPHAMIDE [Suspect]
     Indication: BREAST CANCER
     Route: 042
  2. BEVACIZUMAB [Suspect]
     Indication: BREAST CANCER
     Dosage: BEVACIZUMAB 15MG/KG ON DAY 1 EVERY 21DAYS FOR 4 CYCLES
     Route: 042
  3. CAPECITABINE [Suspect]
     Indication: BREAST CANCER
     Route: 048
  4. BEVACIZUMAB [Suspect]
     Dosage: DOSE: EVERY 21 DAYS FOR INITIAL 2 CYCLES, FOR A TOTAL 6 PREOPERATIVE DOSES OF BEVACIZUMAB.
     Route: 042
  5. DOCETAXEL [Suspect]
     Indication: BREAST CANCER
     Dosage: REGIMEN: 75 MG/M2 ON DAY 1
     Route: 042
  6. CAPECITABINE [Suspect]
     Dosage: DOSE: 825MG/M2 ORALLY TWICW DAILY FOR 14 DAYS EVERY 21 DAYS FOR 4 CYCLES.
     Route: 048
  7. DOXORUBICIN HCL [Suspect]
     Indication: BREAST CANCER
     Route: 042

REACTIONS (25)
  - PERIPHERAL SENSORY NEUROPATHY [None]
  - EMBOLISM [None]
  - FEBRILE NEUTROPENIA [None]
  - RASH [None]
  - WEIGHT DECREASED [None]
  - DYSPEPSIA [None]
  - LYMPHOPENIA [None]
  - DIARRHOEA [None]
  - NAUSEA [None]
  - HYPERTENSION [None]
  - FATIGUE [None]
  - HOT FLUSH [None]
  - DEHYDRATION [None]
  - PALMAR-PLANTAR ERYTHRODYSAESTHESIA SYNDROME [None]
  - MYALGIA [None]
  - HAEMOGLOBIN ABNORMAL [None]
  - INFECTION [None]
  - DECREASED APPETITE [None]
  - HYPOKALAEMIA [None]
  - ABDOMINAL PAIN [None]
  - WHITE BLOOD CELL DISORDER [None]
  - THROMBOSIS [None]
  - HEADACHE [None]
  - MUCOSAL INFLAMMATION [None]
  - NEUTROPHIL COUNT ABNORMAL [None]
